FAERS Safety Report 17986653 (Version 1)
Quarter: 2020Q3

REPORT INFORMATION
  Report Type: Spontaneous
  Country: US (occurrence: US)
  Receive Date: 20200706
  Receipt Date: 20200706
  Transmission Date: 20201103
  Serious: No
  Sender: FDA-Public Use
  Company Number: US-PURDUE-USA-2019-0147963

PATIENT
  Sex: Male
  Weight: 58.97 kg

DRUGS (4)
  1. DRONABINOL CAPSULES [Suspect]
     Active Substance: DRONABINOL
     Indication: NAUSEA
     Dosage: UNK
     Route: 048
  2. DRONABINOL CAPSULES [Suspect]
     Active Substance: DRONABINOL
     Indication: DECREASED APPETITE
  3. LYRICA [Concomitant]
     Active Substance: PREGABALIN
     Indication: FIBROMYALGIA
     Dosage: 100 MG, TID
     Route: 048
     Dates: start: 2017
  4. DRONABINOL CAPSULES [Suspect]
     Active Substance: DRONABINOL
     Indication: VOMITING

REACTIONS (2)
  - Drug ineffective [Unknown]
  - Product quality issue [Unknown]
